FAERS Safety Report 19376472 (Version 2)
Quarter: 2021Q2

REPORT INFORMATION
  Report Type: Spontaneous
  Country: AR (occurrence: AR)
  Receive Date: 20210604
  Receipt Date: 20210618
  Transmission Date: 20210717
  Serious: Yes (Other)
  Sender: FDA-Public Use
  Company Number: NVSC2021AR123822

PATIENT
  Age: 77 Year
  Sex: Male

DRUGS (4)
  1. AZOPT [Suspect]
     Active Substance: BRINZOLAMIDE
     Indication: GLAUCOMA
     Dosage: Q12H (1 OF 5 ML IN EACH EYE, Q12H ( IN MORNING AND IN THE NIGHT) (APPROXIMATELY SINCE 8 TO 10 YEARS
     Route: 047
  2. INDACATEROL [Suspect]
     Active Substance: INDACATEROL
     Indication: PRODUCT USED FOR UNKNOWN INDICATION
     Route: 065
  3. AZOPT [Suspect]
     Active Substance: BRINZOLAMIDE
     Dosage: UNK, Q24H
     Route: 065
  4. TRAVATAN [Suspect]
     Active Substance: TRAVOPROST
     Indication: GLAUCOMA
     Dosage: QD (1 OF 0.004% X 2.5 ML (AS REPORTED) IN EACH EYE, QD (IN MORNING AD IN NIGHT) APPROXIMATELY SINCE
     Route: 047

REACTIONS (5)
  - Product availability issue [Unknown]
  - Fistula [Unknown]
  - Chronic obstructive pulmonary disease [Unknown]
  - Inappropriate schedule of product administration [Unknown]
  - Anger [Unknown]
